FAERS Safety Report 21578290 (Version 3)
Quarter: 2023Q1

REPORT INFORMATION
  Report Type: Spontaneous
  Country: DE (occurrence: DE)
  Receive Date: 20221110
  Receipt Date: 20230207
  Transmission Date: 20230417
  Serious: Yes (Life-Threatening, Hospitalization, Other)
  Sender: FDA-Public Use
  Company Number: None

PATIENT
  Age: 10 Year
  Sex: Female

DRUGS (5)
  1. PREDNISOLONE [Suspect]
     Active Substance: PREDNISOLONE
     Indication: Behaviour disorder
     Dosage: UNK (DOSAGE1: PKGID=R021603)
     Route: 065
     Dates: start: 2019
  2. GARDASIL 9 [Suspect]
     Active Substance: HUMAN PAPILLOMAVIRUS TYPE 11 L1 CAPSID PROTEIN ANTIGEN\HUMAN PAPILLOMAVIRUS TYPE 16 L1 CAPSID PROTEI
     Indication: Immunisation
     Dosage: UNK
     Route: 065
  3. GARDASIL 9 [Suspect]
     Active Substance: HUMAN PAPILLOMAVIRUS TYPE 11 L1 CAPSID PROTEIN ANTIGEN\HUMAN PAPILLOMAVIRUS TYPE 16 L1 CAPSID PROTEI
     Dosage: UNK
     Route: 065
  4. GARDASIL 9 [Suspect]
     Active Substance: HUMAN PAPILLOMAVIRUS TYPE 11 L1 CAPSID PROTEIN ANTIGEN\HUMAN PAPILLOMAVIRUS TYPE 16 L1 CAPSID PROTEI
     Dosage: UNK
     Route: 065
  5. GARDASIL [Suspect]
     Active Substance: HUMAN PAPILLOMAVIRUS QUADRIVALENT (TYPES 6, 11, 16, AND 18) VACCINE, RECOMBINANT
     Indication: Immunisation
     Dosage: 1 DOSAGE FORM
     Route: 030
     Dates: start: 20181213

REACTIONS (14)
  - Organic brain syndrome [Recovered/Resolved]
  - Organic brain syndrome [Recovered/Resolved with Sequelae]
  - Intellectual disability [Recovered/Resolved with Sequelae]
  - Encephalitis autoimmune [Recovered/Resolved with Sequelae]
  - Pica [Not Recovered/Not Resolved]
  - Personality change [Not Recovered/Not Resolved]
  - Disorientation [Unknown]
  - Salivary hypersecretion [Unknown]
  - Cardiovascular disorder [Unknown]
  - Foot deformity [Unknown]
  - Vitamin B12 deficiency [Unknown]
  - Vomiting [Unknown]
  - Amenorrhoea [Unknown]
  - Drug ineffective [Unknown]

NARRATIVE: CASE EVENT DATE: 20190301
